FAERS Safety Report 4800236-1 (Version None)
Quarter: 2005Q4

REPORT INFORMATION
  Report Type: 
  Country: None (occurrence: None)
  Receive Date: 20051017
  Receipt Date: 20050805
  Transmission Date: 20060501
  Serious: No
  Sender: FDA-Public Use
  Company Number: US-GLAXOSMITHKLINE-A0569096A

PATIENT
  Age: 7 Year
  Sex: Female

DRUGS (1)
  1. CEFUROXIME AXETIL [Suspect]
     Indication: LYME DISEASE
     Dosage: 250MG THREE TIMES PER DAY
     Route: 048
     Dates: start: 20050802, end: 20050805

REACTIONS (2)
  - ERYTHEMA [None]
  - FLUSHING [None]
